FAERS Safety Report 5033514-4 (Version None)
Quarter: 2006Q2

REPORT INFORMATION
  Report Type: 
  Country: None (occurrence: None)
  Receive Date: 20060623
  Receipt Date: 20060616
  Transmission Date: 20061013
  Serious: Yes (Other)
  Sender: FDA-Public Use
  Company Number: PHBS2006ES09033

PATIENT
  Age: 39 Year
  Sex: Female

DRUGS (2)
  1. ELIDEL [Suspect]
     Indication: DERMATITIS ATOPIC
     Route: 061
     Dates: start: 20040101
  2. ELIDEL [Suspect]
     Route: 061
     Dates: start: 20050401

REACTIONS (4)
  - DERMATITIS ATOPIC [None]
  - DISEASE RECURRENCE [None]
  - MALIGNANT MELANOMA IN SITU [None]
  - WHITE BLOOD CELL COUNT DECREASED [None]
